FAERS Safety Report 6972327-0 (Version None)
Quarter: 2010Q3

REPORT INFORMATION
  Report Type: 
  Country: None (occurrence: None)
  Receive Date: 20100909
  Receipt Date: 20100827
  Transmission Date: 20110219
  Serious: Yes (Hospitalization, Other)
  Sender: FDA-Public Use
  Company Number: PHHY2009AT42683

PATIENT
  Age: 68 Year
  Sex: Female

DRUGS (4)
  1. TASIGNA [Suspect]
     Indication: CHRONIC MYELOID LEUKAEMIA
     Dosage: 800 MG, QD
     Route: 048
     Dates: start: 20080719
  2. CONCOR [Concomitant]
     Indication: HYPERTENSION
     Dosage: 5 MG, QD
     Route: 048
     Dates: start: 20070101
  3. BLOPRESS [Concomitant]
     Indication: HYPERTENSION
     Dosage: 16 MG, BID
     Route: 048
     Dates: start: 20070101
  4. PLAVIX [Concomitant]
     Indication: PERIPHERAL ARTERIAL OCCLUSIVE DISEASE
     Dosage: 75 MG, 1X1
     Route: 048
     Dates: start: 20090901

REACTIONS (7)
  - ANGIOPLASTY [None]
  - ARTERIAL BYPASS OPERATION [None]
  - BLOOD GLUCOSE INCREASED [None]
  - INTERMITTENT CLAUDICATION [None]
  - MUSCLE SPASMS [None]
  - PERIPHERAL ARTERIAL OCCLUSIVE DISEASE [None]
  - STENT PLACEMENT [None]
